FAERS Safety Report 9402747 (Version 1)
Quarter: 2013Q3

REPORT INFORMATION
  Report Type: Spontaneous
  Country: FR (occurrence: FR)
  Receive Date: 20130716
  Receipt Date: 20130716
  Transmission Date: 20140515
  Serious: Yes (Hospitalization)
  Sender: FDA-Public Use
  Company Number: FR-PFIZER INC-2013203147

PATIENT
  Age: 19 Year
  Sex: Female

DRUGS (8)
  1. STEDIRIL [Suspect]
     Indication: CONTRACEPTION
     Dosage: UNK
     Route: 048
     Dates: end: 20100911
  2. MEDROL [Suspect]
     Indication: IMMUNE THROMBOCYTOPENIC PURPURA
     Dosage: 32 MG, 1X/DAY
     Route: 048
     Dates: start: 20100803
  3. MEDROL [Suspect]
     Dosage: 16 MG, 1X/DAY
     Route: 048
     Dates: start: 20100916, end: 20100929
  4. PREDNISONE [Suspect]
     Indication: IMMUNE THROMBOCYTOPENIC PURPURA
     Dosage: 60 MG, 1X/DAY
     Route: 048
     Dates: start: 20100720, end: 20100803
  5. NPLATE [Suspect]
     Indication: IMMUNE THROMBOCYTOPENIC PURPURA
     Dosage: 3 UG/KG
     Route: 042
     Dates: start: 20100805
  6. NPLATE [Suspect]
     Dosage: 3 UG/KG, WEEKLY
     Route: 042
     Dates: start: 20100815, end: 20100911
  7. IMMUNOGLOBULIN HUMAN NORMAL [Suspect]
     Indication: IMMUNE THROMBOCYTOPENIC PURPURA
     Dosage: 60 G, CYCLIC
     Route: 048
     Dates: start: 20100805, end: 20100911
  8. RITUXIMAB [Suspect]
     Indication: IMMUNE THROMBOCYTOPENIC PURPURA
     Dosage: 1 G, PER COURSE
     Route: 042
     Dates: start: 20100823, end: 20100906

REACTIONS (1)
  - Pulmonary embolism [Recovered/Resolved]
